FAERS Safety Report 9361604 (Version 2)
Quarter: 2013Q3

REPORT INFORMATION
  Report Type: Spontaneous
  Country: US (occurrence: US)
  Receive Date: 20130621
  Receipt Date: 20130701
  Transmission Date: 20140515
  Serious: Yes (Other)
  Sender: FDA-Public Use
  Company Number: US-SANOFI-AVENTIS-2013SA036666

PATIENT
  Age: 54 Year
  Sex: Female
  Weight: 86.18 kg

DRUGS (11)
  1. AUBAGIO [Suspect]
     Indication: MULTIPLE SCLEROSIS
     Route: 048
     Dates: start: 20130316
  2. AUBAGIO [Suspect]
     Indication: MULTIPLE SCLEROSIS
     Route: 048
     Dates: start: 20130316
  3. BACLOFEN [Concomitant]
     Indication: MUSCLE SPASTICITY
  4. NEURONTIN [Concomitant]
     Indication: NEURALGIA
     Dosage: TAKEN FROM: 5 YEARS AGO
  5. CELEXA [Concomitant]
     Indication: DEPRESSION
     Dates: start: 201212
  6. VENLAFAXINE [Concomitant]
     Indication: DEPRESSION
     Dates: start: 200212
  7. TRAZODONE [Concomitant]
     Indication: DEPRESSION
     Dates: start: 199712
  8. LOSARTAN [Concomitant]
     Indication: HYPERTENSION
     Dosage: TAKEN FROM: 5 YEARS AGO
  9. GABAPENTIN [Concomitant]
     Indication: NEURALGIA
  10. CARBINOXAMINE [Concomitant]
     Indication: HYPERSENSITIVITY
  11. CHLOROQUINE [Concomitant]
     Indication: UPPER RESPIRATORY TRACT INFECTION
     Dates: start: 20130604, end: 20130614

REACTIONS (21)
  - Pneumonia [Recovering/Resolving]
  - Bronchitis [Recovering/Resolving]
  - Pulmonary congestion [Recovered/Resolved]
  - Wheezing [Recovered/Resolved]
  - Influenza [Recovering/Resolving]
  - Arthralgia [Not Recovered/Not Resolved]
  - Joint stiffness [Not Recovered/Not Resolved]
  - Gait disturbance [Not Recovered/Not Resolved]
  - Asthenia [Not Recovered/Not Resolved]
  - Feeling abnormal [Not Recovered/Not Resolved]
  - Pyrexia [Recovered/Resolved]
  - Hot flush [Recovered/Resolved]
  - Flushing [Not Recovered/Not Resolved]
  - Cough [Recovered/Resolved]
  - Hypoaesthesia [Not Recovered/Not Resolved]
  - Nasal congestion [Recovered/Resolved]
  - Burning sensation [Not Recovered/Not Resolved]
  - Blood pressure increased [Unknown]
  - Epistaxis [Unknown]
  - Bone pain [Recovered/Resolved]
  - Rhinorrhoea [Recovered/Resolved]
